FAERS Safety Report 4510136-2 (Version None)
Quarter: 2004Q4

REPORT INFORMATION
  Report Type: 
  Country: None (occurrence: None)
  Receive Date: 20041119
  Receipt Date: 20041104
  Transmission Date: 20050328
  Serious: Yes (Hospitalization)
  Sender: FDA-Public Use
  Company Number: 2004-11-0553

PATIENT
  Age: 68 Year
  Sex: Male

DRUGS (4)
  1. INTRON A [Suspect]
     Indication: HEPATITIS C
     Dosage: SEE IMAGE, INTRAMUSCULAR
     Route: 030
     Dates: start: 19920427, end: 19920503
  2. INTRON A [Suspect]
     Indication: HEPATITIS C
     Dosage: SEE IMAGE, INTRAMUSCULAR
     Route: 030
     Dates: start: 19920504, end: 19920510
  3. INTRON A [Suspect]
     Indication: HEPATITIS C
     Dosage: SEE IMAGE, INTRAMUSCULAR
     Route: 030
     Dates: start: 19920511, end: 19921010
  4. INTERFERON ALFA INJECTABLE [Suspect]
     Indication: HEPATITIS C
     Dosage: 6 MU QD-TIW
     Dates: start: 19920504, end: 19921010

REACTIONS (2)
  - HEPATIC NEOPLASM MALIGNANT [None]
  - URTICARIA [None]
